FAERS Safety Report 8102028 (Version 2)
Quarter: 2013Q1

REPORT INFORMATION
  Report Type: Spontaneous
  Country: US (occurrence: US)
  Receive Date: 20110823
  Receipt Date: 20130218
  Transmission Date: 20140127
  Serious: Yes (Other)
  Sender: FDA-Public Use
  Company Number: US-ROCHE-797079

PATIENT
  Age: 45 Year
  Sex: Female
  Weight: 81.72 kg

DRUGS (6)
  1. ACCUTANE [Suspect]
     Indication: ACNE
     Route: 065
  2. ACCUTANE [Suspect]
     Route: 065
  3. ACCUTANE [Suspect]
     Route: 065
     Dates: start: 20040416, end: 20040516
  4. ACCUTANE [Suspect]
     Route: 065
     Dates: start: 20080905, end: 20080926
  5. SOTRET [Suspect]
     Indication: ACNE
     Route: 065
  6. AMNESTEEM [Suspect]
     Indication: ACNE
     Route: 065
     Dates: start: 20080926, end: 20080926

REACTIONS (8)
  - Injury [Unknown]
  - Crohn^s disease [Unknown]
  - Inflammatory bowel disease [Unknown]
  - Depression [Unknown]
  - Blood triglycerides increased [Unknown]
  - Blood cholesterol increased [Unknown]
  - Acne [Unknown]
  - Dry skin [Unknown]
